FAERS Safety Report 23741981 (Version 1)
Quarter: 2024Q2

REPORT INFORMATION
  Report Type: Spontaneous
  Country: BR (occurrence: BR)
  Receive Date: 20240415
  Receipt Date: 20240415
  Transmission Date: 20240716
  Serious: Yes (Other)
  Sender: FDA-Public Use
  Company Number: BR-DSJP-DSE-2024-116617

PATIENT
  Sex: Female

DRUGS (1)
  1. ENHERTU [Suspect]
     Active Substance: FAM-TRASTUZUMAB DERUXTECAN-NXKI
     Indication: Breast cancer
     Dosage: AT FULL DOSE
     Route: 065

REACTIONS (4)
  - Blindness [Unknown]
  - Retinopathy [Unknown]
  - Macular oedema [Unknown]
  - Retinal cyst [Unknown]
